FAERS Safety Report 7422893-6 (Version None)
Quarter: 2011Q2

REPORT INFORMATION
  Report Type: 
  Country: None (occurrence: None)
  Receive Date: 20110419
  Receipt Date: 20110408
  Transmission Date: 20111010
  Serious: Yes (Other)
  Sender: FDA-Public Use
  Company Number: BE-JNJFOC-20110403391

PATIENT
  Sex: Female

DRUGS (7)
  1. INVEGA [Suspect]
     Indication: MAJOR DEPRESSION
     Route: 048
  2. INVEGA [Suspect]
     Indication: PARKINSON'S DISEASE
     Route: 048
  3. INVEGA [Suspect]
     Route: 048
  4. REQUIP [Concomitant]
     Indication: PRODUCT USED FOR UNKNOWN INDICATION
     Route: 065
  5. SEROQUEL [Concomitant]
     Indication: PRODUCT USED FOR UNKNOWN INDICATION
     Route: 065
  6. CIPRALEX [Concomitant]
     Indication: PRODUCT USED FOR UNKNOWN INDICATION
     Route: 065
  7. INVEGA [Suspect]
     Route: 048

REACTIONS (3)
  - SOMNOLENCE [None]
  - HALLUCINATION [None]
  - OFF LABEL USE [None]
